FAERS Safety Report 9165672 (Version 1)
Quarter: 2013Q1

REPORT INFORMATION
  Report Type: Spontaneous
  Country: US (occurrence: US)
  Receive Date: 20130315
  Receipt Date: 20130315
  Transmission Date: 20140127
  Serious: No
  Sender: FDA-Public Use
  Company Number: US-B.I. PHARMACEUTICALS,INC./RIDGEFIELD-2013-BI-06949BP

PATIENT
  Sex: Female
  Weight: 67 kg

DRUGS (4)
  1. CATAPRES TTS [Suspect]
     Indication: HYPERTENSION
     Dosage: 0.3 MG
     Dates: start: 201302
  2. BYSTOLIC [Concomitant]
     Indication: HYPERTENSION
     Dosage: 10 MG
     Route: 048
  3. CADUET [Concomitant]
     Indication: BLOOD CHOLESTEROL INCREASED
     Dosage: STRENGTH: 5/10 MG; DAILY DOSE: 5/10 MG
     Route: 048
  4. ASPIRIN [Concomitant]
     Dosage: 81 MG
     Route: 048

REACTIONS (3)
  - Application site pruritus [Not Recovered/Not Resolved]
  - Local swelling [Not Recovered/Not Resolved]
  - Oedema [Not Recovered/Not Resolved]
